FAERS Safety Report 6543161-0 (Version None)
Quarter: 2010Q1

REPORT INFORMATION
  Report Type: 
  Country: None (occurrence: None)
  Receive Date: 20100120
  Receipt Date: 20100113
  Transmission Date: 20100710
  Serious: Yes (Hospitalization)
  Sender: FDA-Public Use
  Company Number: BR-ASTRAZENECA-2010SE02122

PATIENT
  Age: 80 Year
  Sex: Female
  Weight: 85 kg

DRUGS (8)
  1. ATACAND [Suspect]
     Indication: HYPERTENSION
     Route: 048
     Dates: end: 20091001
  2. SYNTHROID [Concomitant]
     Indication: HYPOTHYROIDISM
     Dosage: DAILY
     Route: 048
  3. VYTORIN [Concomitant]
     Indication: BLOOD CHOLESTEROL INCREASED
     Dosage: DAILY
     Route: 048
  4. AMARYL [Concomitant]
     Indication: DIABETES MELLITUS
     Dosage: THREE TIMES A DAY
     Route: 048
  5. JANOMET [Concomitant]
     Indication: DIABETES MELLITUS
     Dosage: TWO TIMES A DAY
     Route: 048
  6. FOLIC ACID [Concomitant]
     Indication: MUSCULOSKELETAL PAIN
     Route: 048
  7. METROTEXICEIDE [Concomitant]
     Indication: MUSCULOSKELETAL PAIN
     Dosage: 10 TABLET ONCE A WEEK
     Route: 048
  8. RABEPRAZOLE SODIUM [Concomitant]
     Indication: PROPHYLAXIS
     Dosage: DAILY
     Route: 048

REACTIONS (1)
  - URINARY TRACT INFECTION [None]
